FAERS Safety Report 6163619-6 (Version None)
Quarter: 2009Q2

REPORT INFORMATION
  Report Type: 
  Country: None (occurrence: None)
  Receive Date: 20090420
  Receipt Date: 20090320
  Transmission Date: 20091009
  Serious: Yes (Other)
  Sender: FDA-Public Use
  Company Number: SPV1-2008-01539

PATIENT
  Age: 45 Year
  Sex: Female
  Weight: 59.6 kg

DRUGS (11)
  1. 476 (MESALAZINE/MESALAMINE)(476 (MESALAZINE/MESALAMINE)) TABLET [Suspect]
     Indication: COLITIS ULCERATIVE
     Dosage: 2.4 G, 1X/DAY:QD, ORAL
     Route: 048
     Dates: start: 20080421, end: 20080623
  2. DEPO-MEDROL [Suspect]
     Indication: LUMBAR RADICULOPATHY
     Dosage: 80 MG, ONE DOSE, EPIDURAL
     Route: 008
     Dates: start: 20080627, end: 20080627
  3. DULCOLAX-S (BISACODYL, DOCUSATE SODIUM) [Concomitant]
  4. FLEXERIL [Concomitant]
  5. FLUCONAZOLE [Concomitant]
  6. EXTRA STRENGTH TYLENOL [Concomitant]
  7. ASACOL [Concomitant]
  8. LIDOCAINE [Concomitant]
  9. ESTRACE [Concomitant]
  10. MAXOLON [Concomitant]
  11. BISCODYL [Concomitant]

REACTIONS (1)
  - HEADACHE [None]
